FAERS Safety Report 5195119-4 (Version None)
Quarter: 2006Q4

REPORT INFORMATION
  Report Type: 
  Country: None (occurrence: None)
  Receive Date: 20061229
  Receipt Date: 20061220
  Transmission Date: 20070319
  Serious: Yes (Other)
  Sender: FDA-Public Use
  Company Number: JP-PFIZER INC-2006156005

PATIENT
  Sex: Female

DRUGS (9)
  1. NIFEDIPINE [Suspect]
     Indication: HYPERTENSION
     Dosage: DAILY DOSE:20MG
     Route: 048
  2. PAXIL [Suspect]
     Indication: DEPRESSION
     Dosage: DAILY DOSE:10MG
     Route: 048
  3. MICARDIS [Suspect]
     Indication: HYPERTENSION
     Dosage: DAILY DOSE:40MG
     Route: 048
  4. RESLIN [Concomitant]
     Dosage: DAILY DOSE:50MG
  5. AMOBAN [Concomitant]
     Dosage: DAILY DOSE:10MG
  6. CYSTANIN [Concomitant]
  7. MANIDIPINE [Concomitant]
  8. CLONAZEPAM [Concomitant]
  9. OLANZAPINE [Concomitant]

REACTIONS (2)
  - BRADYCARDIA [None]
  - LOSS OF CONSCIOUSNESS [None]
